FAERS Safety Report 6840749-4 (Version None)
Quarter: 2010Q3

REPORT INFORMATION
  Report Type: 
  Country: None (occurrence: None)
  Receive Date: 20100714
  Receipt Date: 20100702
  Transmission Date: 20110219
  Serious: Yes (Other)
  Sender: FDA-Public Use
  Company Number: US-PFIZER INC-2010083125

PATIENT
  Sex: Female
  Weight: 58.957 kg

DRUGS (3)
  1. CHANTIX [Suspect]
     Indication: SMOKING CESSATION THERAPY
     Dosage: UNK MG, UNK
     Route: 048
     Dates: start: 20100401, end: 20100101
  2. OGEN [Concomitant]
     Indication: HORMONE THERAPY
     Dosage: 0.625 MG, 1X/DAY
     Route: 048
  3. CENTRUM SILVER [Concomitant]
     Dosage: UNK
     Route: 048

REACTIONS (3)
  - AGITATION [None]
  - BLOOD PRESSURE INCREASED [None]
  - DEPRESSION [None]
